FAERS Safety Report 23378294 (Version 1)
Quarter: 2024Q1

REPORT INFORMATION
  Report Type: Spontaneous
  Country: None (occurrence: US)
  Receive Date: 20240108
  Receipt Date: 20240108
  Transmission Date: 20240409
  Serious: Yes (Other)
  Sender: FDA-Public Use
  Company Number: US-The Proactiv LLC-2150587

PATIENT
  Age: 45 Year
  Sex: Female

DRUGS (4)
  1. PROACTIVPLUS SKIN SMOOTHING EXFOLIATOR [Suspect]
     Active Substance: BENZOYL PEROXIDE
     Route: 061
  2. PROACTIV PLUS COMPLEXION PERFECTING HYDRATOR [Suspect]
     Active Substance: SALICYLIC ACID
     Route: 061
  3. PROACTIV PLUS PORE TARGETING TREATMENT [Suspect]
     Active Substance: BENZOYL PEROXIDE
     Route: 061
  4. PROACTIV SKIN PURIFYING MASK [Suspect]
     Active Substance: SULFUR
     Route: 061

REACTIONS (1)
  - Lung adenocarcinoma stage III [Unknown]

NARRATIVE: CASE EVENT DATE: 20230922
